FAERS Safety Report 25236103 (Version 2)
Quarter: 2025Q2

REPORT INFORMATION
  Report Type: Spontaneous
  Country: GB (occurrence: GB)
  Receive Date: 20250424
  Receipt Date: 20250613
  Transmission Date: 20250717
  Serious: Yes (Disabling, Other)
  Sender: ELI LILLY AND COMPANY
  Company Number: GB-ELI_LILLY_AND_COMPANY-GB202504014412

PATIENT
  Age: 43 Year
  Sex: Female

DRUGS (2)
  1. PROZAC [Suspect]
     Active Substance: FLUOXETINE HYDROCHLORIDE
     Indication: Autism spectrum disorder
     Route: 065
  2. PROZAC [Suspect]
     Active Substance: FLUOXETINE HYDROCHLORIDE
     Indication: Attention deficit hyperactivity disorder

REACTIONS (18)
  - Paralysis [Unknown]
  - Hypoaesthesia [Unknown]
  - Joint dislocation [Unknown]
  - Pain [Unknown]
  - Central pain syndrome [Unknown]
  - Brain injury [Unknown]
  - Idiopathic intracranial hypertension [Unknown]
  - Mobility decreased [Unknown]
  - Narcolepsy [Recovered/Resolved]
  - Coma [Recovered/Resolved]
  - Cognitive disorder [Unknown]
  - Tinnitus [Unknown]
  - Seizure [Recovered/Resolved]
  - Memory impairment [Unknown]
  - Fatigue [Unknown]
  - Off label use [Unknown]
  - Drug hypersensitivity [Unknown]
  - Malaise [Unknown]

NARRATIVE: CASE EVENT DATE: 20100101
